FAERS Safety Report 4378105-3 (Version None)
Quarter: 2004Q2

REPORT INFORMATION
  Report Type: 
  Country: None (occurrence: None)
  Receive Date: 20040609
  Receipt Date: 20040525
  Transmission Date: 20050107
  Serious: Yes (Other)
  Sender: FDA-Public Use
  Company Number: T04-GER-02370-01

PATIENT
  Age: 73 Year
  Sex: Male

DRUGS (7)
  1. CIPRALEX (ESCITALOPRAM) [Suspect]
     Indication: DEPRESSION
     Dosage: 10 MG QD
     Dates: start: 20031127, end: 20031208
  2. VOLTAREN [Concomitant]
  3. ALLOPURINOL [Concomitant]
  4. LORZAAR (LOSARTAN POTASSIUM) [Concomitant]
  5. METOPROLOL TARTRATE [Concomitant]
  6. VALORON N [Concomitant]
  7. STILNOX (ZOLPIDEM) [Concomitant]

REACTIONS (1)
  - URINARY RETENTION [None]
